FAERS Safety Report 13780292 (Version 1)
Quarter: 2017Q3

REPORT INFORMATION
  Report Type: Spontaneous
  Country: FR (occurrence: FR)
  Receive Date: 20170724
  Receipt Date: 20170724
  Transmission Date: 20171127
  Serious: Yes (Other)
  Sender: FDA-Public Use
  Company Number: FR-ROCHE-1964077

PATIENT
  Age: 67 Year
  Sex: Female

DRUGS (29)
  1. AVASTIN [Suspect]
     Active Substance: BEVACIZUMAB
     Dosage: 25MG/ML
     Route: 041
     Dates: start: 20161118
  2. AVASTIN [Suspect]
     Active Substance: BEVACIZUMAB
     Dosage: 25MG/ML
     Route: 041
     Dates: start: 20161202
  3. AVASTIN [Suspect]
     Active Substance: BEVACIZUMAB
     Dosage: 25MG/ML
     Route: 041
     Dates: start: 20170224
  4. BELUSTINE [Suspect]
     Active Substance: LOMUSTINE
     Route: 048
     Dates: start: 20161202
  5. BELUSTINE [Suspect]
     Active Substance: LOMUSTINE
     Route: 048
     Dates: start: 20170210
  6. RILMENIDINE [Suspect]
     Active Substance: RILMENIDINE
     Indication: HYPERTENSION
     Route: 048
     Dates: start: 201704
  7. ALOE VERA [Concomitant]
     Active Substance: ALOE VERA LEAF
  8. AVASTIN [Suspect]
     Active Substance: BEVACIZUMAB
     Indication: GLIOBLASTOMA
     Dosage: 25MG/ML
     Route: 041
     Dates: start: 20161019
  9. AVASTIN [Suspect]
     Active Substance: BEVACIZUMAB
     Dosage: 25MG/ML
     Route: 041
     Dates: start: 20161031
  10. AVASTIN [Suspect]
     Active Substance: BEVACIZUMAB
     Dosage: 25MG/ML
     Route: 041
     Dates: start: 20161214
  11. BELUSTINE [Suspect]
     Active Substance: LOMUSTINE
     Indication: GLIOBLASTOMA
     Route: 048
     Dates: start: 20161019
  12. BELUSTINE [Suspect]
     Active Substance: LOMUSTINE
     Route: 048
     Dates: start: 20161118
  13. BELUSTINE [Suspect]
     Active Substance: LOMUSTINE
     Route: 048
     Dates: start: 20161214
  14. LERCANIDIPINE HYDROCHLORIDE [Suspect]
     Active Substance: LERCANIDIPINE HYDROCHLORIDE
     Indication: HYPERTENSION
     Route: 048
     Dates: start: 201704
  15. PRETERAX [Concomitant]
     Active Substance: INDAPAMIDE\PERINDOPRIL
  16. FOTEMUSTINE [Concomitant]
     Active Substance: FOTEMUSTINE
  17. AVASTIN [Suspect]
     Active Substance: BEVACIZUMAB
     Dosage: 25MG/ML
     Route: 041
     Dates: start: 20161229
  18. AVASTIN [Suspect]
     Active Substance: BEVACIZUMAB
     Dosage: 25MG/ML
     Route: 041
     Dates: start: 20170112
  19. AVASTIN [Suspect]
     Active Substance: BEVACIZUMAB
     Dosage: 25MG/ML
     Route: 041
     Dates: start: 20170310
  20. BELUSTINE [Suspect]
     Active Substance: LOMUSTINE
     Route: 048
     Dates: start: 20170112
  21. AVASTIN [Suspect]
     Active Substance: BEVACIZUMAB
     Dosage: 25MG/ML
     Route: 041
     Dates: start: 20170127
  22. BELUSTINE [Suspect]
     Active Substance: LOMUSTINE
     Route: 048
     Dates: start: 20161031
  23. BELUSTINE [Suspect]
     Active Substance: LOMUSTINE
     Route: 048
     Dates: start: 20170324
  24. OMEPRAZOLE. [Concomitant]
     Active Substance: OMEPRAZOLE
     Indication: GASTRITIS PROPHYLAXIS
     Route: 065
  25. DESMODIUM [Concomitant]
  26. BELUSTINE [Suspect]
     Active Substance: LOMUSTINE
     Route: 048
     Dates: start: 20161229
  27. BELUSTINE [Suspect]
     Active Substance: LOMUSTINE
     Route: 048
     Dates: start: 20170310
  28. AVASTIN [Suspect]
     Active Substance: BEVACIZUMAB
     Dosage: 25MG/ML
     Route: 041
     Dates: start: 20170324
  29. BELUSTINE [Suspect]
     Active Substance: LOMUSTINE
     Route: 048
     Dates: start: 20170127

REACTIONS (3)
  - Retinal artery occlusion [Recovered/Resolved]
  - Intentional product use issue [Unknown]
  - Off label use [Unknown]

NARRATIVE: CASE EVENT DATE: 20170601
